FAERS Safety Report 5078573-8 (Version None)
Quarter: 2006Q3

REPORT INFORMATION
  Report Type: 
  Country: None (occurrence: None)
  Receive Date: 20060808
  Receipt Date: 20060724
  Transmission Date: 20061208
  Serious: Yes (Hospitalization)
  Sender: FDA-Public Use
  Company Number: 2006PV017389

PATIENT
  Age: 61 Year
  Sex: Male

DRUGS (2)
  1. BYETTA [Suspect]
     Dosage: SEE IMAGE, SC
     Route: 058
     Dates: start: 20060404, end: 20060530
  2. BYETTA [Suspect]
     Dosage: SEE IMAGE, SC
     Route: 058
     Dates: start: 20060530, end: 20060707

REACTIONS (4)
  - BILIARY CIRRHOSIS [None]
  - CONDITION AGGRAVATED [None]
  - DRUG HYPERSENSITIVITY [None]
  - SARCOIDOSIS [None]
